FAERS Safety Report 5294551-8 (Version None)
Quarter: 2007Q2

REPORT INFORMATION
  Report Type: 
  Country: None (occurrence: None)
  Receive Date: 20070409
  Receipt Date: 20070409
  Transmission Date: 20071010
  Serious: Yes (Life-Threatening, Hospitalization)
  Sender: FDA-Public Use
  Company Number: None

PATIENT
  Age: 59 Year
  Sex: Female
  Weight: 68 kg

DRUGS (1)
  1. AGGRENOX [Suspect]
     Indication: ISCHAEMIC STROKE
     Dosage: 1 CAPSULE TWICE DAILY PO
     Route: 048
     Dates: start: 20070320, end: 20070404

REACTIONS (1)
  - HAEMORRHAGIC STROKE [None]
